FAERS Safety Report 8551660-5 (Version None)
Quarter: 2012Q3

REPORT INFORMATION
  Report Type: 
  Country: None (occurrence: None)
  Receive Date: 20120723
  Receipt Date: 20120723
  Transmission Date: 20120928
  Serious: Yes (Hospitalization)
  Sender: FDA-Public Use
  Company Number: None

PATIENT
  Age: 15 Year
  Sex: Male
  Weight: 75 kg

DRUGS (9)
  1. METHOTREXATE [Concomitant]
  2. PENTAMIDINE [Concomitant]
  3. FLUCONAZOLE [Concomitant]
  4. DOCUSATE [Concomitant]
  5. CYTARABINE [Concomitant]
  6. THIOGUANINE [Concomitant]
  7. HYDROMORPHINE HYDROCHLORIDE [Concomitant]
  8. ONDANSETRON [Concomitant]
  9. ERWNIA ASPARAGINASE [Suspect]

REACTIONS (13)
  - PHONOPHOBIA [None]
  - CEREBRAL ISCHAEMIA [None]
  - PLATELET COUNT DECREASED [None]
  - FIBRIN D DIMER INCREASED [None]
  - ANGIOPATHY [None]
  - DYSARTHRIA [None]
  - VOMITING [None]
  - MIGRAINE [None]
  - ASTHENIA [None]
  - PARAESTHESIA [None]
  - HEADACHE [None]
  - HYPOAESTHESIA [None]
  - GAIT DISTURBANCE [None]
